FAERS Safety Report 12305052 (Version 1)
Quarter: 2016Q2

REPORT INFORMATION
  Report Type: Spontaneous
  Country: US (occurrence: None)
  Receive Date: 20160425
  Receipt Date: 20160425
  Transmission Date: 20160815
  Serious: No
  Sender: FDA-Public Use
  Company Number: None

PATIENT
  Age: 43 Year
  Sex: Female

DRUGS (1)
  1. ESZOPICLONE 2MG [Suspect]
     Active Substance: ESZOPICLONE
     Indication: INSOMNIA
     Route: 051
     Dates: start: 20150801, end: 20150901

REACTIONS (1)
  - Somnolence [None]

NARRATIVE: CASE EVENT DATE: 20150801
